FAERS Safety Report 24669691 (Version 1)
Quarter: 2024Q4

REPORT INFORMATION
  Report Type: Spontaneous
  Country: IN (occurrence: IN)
  Receive Date: 20241127
  Receipt Date: 20241127
  Transmission Date: 20250115
  Serious: Yes (Hospitalization, Other)
  Sender: AZURITY PHARMACEUTICALS
  Company Number: IN-AZURITY PHARMACEUTICALS, INC.-AZR202411-001124

PATIENT
  Age: 31 Year
  Sex: Male
  Weight: 70 kg

DRUGS (3)
  1. DEXMEDETOMIDINE HYDROCHLORIDE [Suspect]
     Active Substance: DEXMEDETOMIDINE HYDROCHLORIDE
     Indication: Product used for unknown indication
     Dosage: 0.8 MICROGRAMS/KILOGRAM
     Route: 040
  2. FENTANYL [Concomitant]
     Active Substance: FENTANYL
     Indication: Product used for unknown indication
     Dosage: 200 MICROGRAM, UNKNOWN
     Route: 042
  3. ATRACURIUM [Concomitant]
     Active Substance: ATRACURIUM
     Indication: Product used for unknown indication
     Dosage: 40 MILLIGRAM, UNKNOWN
     Route: 042

REACTIONS (3)
  - Cardiomyopathy [Unknown]
  - Left ventricular dysfunction [Recovered/Resolved]
  - Ventricular tachyarrhythmia [Recovered/Resolved]
